FAERS Safety Report 7362360-1 (Version None)
Quarter: 2011Q1

REPORT INFORMATION
  Report Type: 
  Country: None (occurrence: None)
  Receive Date: 20110318
  Receipt Date: 20110317
  Transmission Date: 20110831
  Serious: Yes (Other)
  Sender: FDA-Public Use
  Company Number: DE-ABBOTT-11P-062-0709221-00

PATIENT
  Age: 50 Year

DRUGS (10)
  1. AMIODARONE HCL [Suspect]
     Indication: CARDIOVERSION
     Route: 042
  2. CIPROFLOXACIN [Suspect]
     Indication: ANTIBIOTIC PROPHYLAXIS
  3. VITAMIN K TAB [Concomitant]
     Indication: COAGULOPATHY
     Dosage: 3 DOSES
     Route: 042
  4. INSULIN [Concomitant]
     Indication: BLOOD GLUCOSE ABNORMAL
     Dosage: PERFUSOR, ACC. TO BLOOD GLUCOSE
  5. HEMOPRESSIN [Concomitant]
     Indication: VASOCONSTRICTION
     Route: 042
  6. RED BLOOD CELLS, CONCENTRATED [Concomitant]
     Indication: RED BLOOD CELL ABNORMALITY
     Dosage: ONE TIME
  7. ERYTHROMYCIN [Suspect]
     Indication: ANTIBIOTIC PROPHYLAXIS
     Dosage: BEFORE ESOPHAGOGASTRODUODENOSCOPYESOPHAGOGASTRODUODENOSCOPY
     Route: 042
  8. PANTOPRAZOLE [Concomitant]
     Indication: GASTRIN SECRETION DISORDER
     Dosage: 25 MG/HOUR
     Route: 042
  9. FRESH FROZEN PLASMA [Concomitant]
     Indication: COAGULOPATHY
     Dosage: ACC. TO QUICK
  10. ERYTHROMYCIN [Suspect]
     Dosage: 10 HOURS LATER

REACTIONS (2)
  - ATRIAL FIBRILLATION [None]
  - TORSADE DE POINTES [None]
